FAERS Safety Report 18392020 (Version 1)
Quarter: 2020Q4

REPORT INFORMATION
  Report Type: Spontaneous
  Country: US (occurrence: US)
  Receive Date: 20201016
  Receipt Date: 20201016
  Transmission Date: 20210114
  Serious: Yes (Other)
  Sender: FDA-Public Use
  Company Number: None

PATIENT
  Age: 76 Year
  Sex: Female
  Weight: 74.25 kg

DRUGS (8)
  1. ALBUTEROL SULFATE INHALATION AEROSOL [Suspect]
     Active Substance: ALBUTEROL SULFATE
     Indication: ASTHMA
     Dosage: ?          QUANTITY:1 INHALATION(S);?
     Route: 055
     Dates: start: 20200903, end: 20201014
  2. FORTEO [Concomitant]
     Active Substance: TERIPARATIDE
  3. ALBUTEROL. [Concomitant]
     Active Substance: ALBUTEROL
  4. HIZENTRA [Concomitant]
     Active Substance: HUMAN IMMUNOGLOBULIN G
  5. EVISTA [Concomitant]
     Active Substance: RALOXIFENE HYDROCHLORIDE
  6. TAMAZEPAM [Concomitant]
     Active Substance: TEMAZEPAM
  7. SINGULAIR [Concomitant]
     Active Substance: MONTELUKAST SODIUM
  8. MULTIVITAMIN [Concomitant]
     Active Substance: VITAMINS

REACTIONS (5)
  - Bronchospasm [None]
  - Device failure [None]
  - Device difficult to use [None]
  - Incorrect dose administered by device [None]
  - Device occlusion [None]

NARRATIVE: CASE EVENT DATE: 20201001
